FAERS Safety Report 17871189 (Version 4)
Quarter: 2020Q3

REPORT INFORMATION
  Report Type: Spontaneous
  Country: JP (occurrence: JP)
  Receive Date: 20200608
  Receipt Date: 20200701
  Transmission Date: 20201103
  Serious: Yes (Death, Hospitalization, Other)
  Sender: FDA-Public Use
  Company Number: JP-PFIZER INC-2020219071

PATIENT
  Age: 87 Year
  Sex: Male

DRUGS (9)
  1. TAKECAB [Suspect]
     Active Substance: VONOPRAZAN FUMARATE
     Dosage: UNK
     Route: 048
  2. RINDERON [BETAMETHASONE SODIUM PHOSPHATE] [Suspect]
     Active Substance: BETAMETHASONE SODIUM PHOSPHATE
     Dosage: UNK
     Route: 041
  3. TRELEGY ELLIPTA [Suspect]
     Active Substance: FLUTICASONE FUROATE\UMECLIDINIUM BROMIDE\VILANTEROL TRIFENATATE
     Dosage: UNK
     Route: 055
  4. CELECOX [Suspect]
     Active Substance: CELECOXIB
     Dosage: UNK
     Route: 048
  5. MEROPEN [Suspect]
     Active Substance: MEROPENEM
     Indication: BACTERIAL INFECTION
     Dosage: 0.5 G, 1X/DAY
     Route: 041
     Dates: start: 20200427, end: 20200427
  6. MEROPEN [Suspect]
     Active Substance: MEROPENEM
     Dosage: 0.5 G, 3X/DAY
     Route: 041
     Dates: start: 20200428, end: 20200507
  7. FUROSEMIDE. [Suspect]
     Active Substance: FUROSEMIDE
     Dosage: UNK
     Route: 048
  8. ATENOLOL. [Suspect]
     Active Substance: ATENOLOL
     Dosage: UNK
     Route: 048
  9. MEROPEN [Suspect]
     Active Substance: MEROPENEM
     Dosage: 0.5 G, 1X/DAY
     Route: 041
     Dates: start: 20200508

REACTIONS (3)
  - Death [Fatal]
  - Lung neoplasm malignant [Fatal]
  - Blood potassium increased [Recovered/Resolved]

NARRATIVE: CASE EVENT DATE: 20200508
